FAERS Safety Report 8463026-7 (Version None)
Quarter: 2012Q2

REPORT INFORMATION
  Report Type: 
  Country: None (occurrence: None)
  Receive Date: 20120625
  Receipt Date: 20100420
  Transmission Date: 20120825
  Serious: Yes (Other)
  Sender: FDA-Public Use
  Company Number: US-ROCHE-700857

PATIENT
  Sex: Female
  Weight: 64.1 kg

DRUGS (8)
  1. BONIVA [Suspect]
     Indication: OSTEOPOROSIS
     Route: 048
  2. THYROID TAB [Suspect]
     Indication: THYROID DISORDER
     Route: 065
  3. POTASSIUM ACETATE [Concomitant]
  4. ASCORBIC ACID [Concomitant]
  5. POLY-IRON [Concomitant]
  6. PACERONE [Concomitant]
  7. COUMADIN [Concomitant]
  8. FOLIC ACID [Concomitant]

REACTIONS (3)
  - LIGAMENT RUPTURE [None]
  - ALOPECIA [None]
  - FALL [None]
